FAERS Safety Report 8159626-4 (Version None)
Quarter: 2012Q1

REPORT INFORMATION
  Report Type: 
  Country: None (occurrence: None)
  Receive Date: 20120216
  Receipt Date: 20120208
  Transmission Date: 20120608
  Serious: Yes (Other)
  Sender: FDA-Public Use
  Company Number: HRA-CDB20120023

PATIENT
  Age: 33 Year
  Sex: Female

DRUGS (1)
  1. ELLAONE 30 MG TABLETS (ELLAONE) (ULIPRISTAL ACETATE) [Suspect]
     Indication: CONTRACEPTION
     Dosage: 30 MG (30 MG, 1 IN 1 D)
     Dates: start: 20111128, end: 20111128

REACTIONS (2)
  - UNINTENDED PREGNANCY [None]
  - MATERNAL EXPOSURE DURING PREGNANCY [None]
